FAERS Safety Report 23428552 (Version 1)
Quarter: 2024Q1

REPORT INFORMATION
  Report Type: Spontaneous
  Country: CN (occurrence: CN)
  Receive Date: 20240122
  Receipt Date: 20240122
  Transmission Date: 20240410
  Serious: Yes (Other)
  Sender: FDA-Public Use
  Company Number: CN-009507513-2401CHN006714

PATIENT
  Age: 26 Year
  Sex: Female
  Weight: 40.6 kg

DRUGS (2)
  1. CILASTATIN SODIUM\IMIPENEM [Suspect]
     Active Substance: CILASTATIN SODIUM\IMIPENEM
     Indication: Renal transplant
     Dosage: 0.5 GRAM, Q12H
     Route: 041
     Dates: start: 20231216, end: 20231220
  2. OU BO [Concomitant]
     Indication: Renal transplant
     Dosage: 5 MILLIGRAM, QD
     Route: 041
     Dates: start: 20231216, end: 20231220

REACTIONS (2)
  - Platelet count decreased [Not Recovered/Not Resolved]
  - Anaemia [Not Recovered/Not Resolved]

NARRATIVE: CASE EVENT DATE: 20231218
